FAERS Safety Report 18036062 (Version 5)
Quarter: 2021Q1

REPORT INFORMATION
  Report Type: Other
  Country: US (occurrence: US)
  Receive Date: 20200717
  Receipt Date: 20210302
  Transmission Date: 20210419
  Serious: Yes (Hospitalization, Other)
  Sender: FDA-Public Use
  Company Number: US-ROCHE-2624045

PATIENT
  Sex: Male
  Weight: 82.63 kg

DRUGS (15)
  1. MUCINEX [Concomitant]
     Active Substance: GUAIFENESIN
     Route: 048
  2. PULMOZYME [Suspect]
     Active Substance: DORNASE ALFA
     Indication: INFECTIVE EXACERBATION OF CHRONIC OBSTRUCTIVE AIRWAYS DISEASE
     Dosage: ONGOING:YES
     Route: 055
     Dates: start: 20200626
  3. SYMBICORT [Concomitant]
     Active Substance: BUDESONIDE\FORMOTEROL FUMARATE DIHYDRATE
     Indication: CHRONIC OBSTRUCTIVE PULMONARY DISEASE
  4. PULMOZYME [Suspect]
     Active Substance: DORNASE ALFA
     Indication: CHRONIC OBSTRUCTIVE PULMONARY DISEASE
     Dosage: NEBULIZE THE CONTENTS OF 1 VIAL(S) 2.5MG EVERY DAY
     Route: 055
  5. PULMOZYME [Suspect]
     Active Substance: DORNASE ALFA
     Indication: COUGH
  6. PULMOZYME [Suspect]
     Active Substance: DORNASE ALFA
     Indication: DYSPNOEA
  7. DOXYCYCLINE. [Concomitant]
     Active Substance: DOXYCYCLINE
     Dates: start: 2020
  8. PULMOZYME [Suspect]
     Active Substance: DORNASE ALFA
     Indication: PNEUMONIA PSEUDOMONAL
     Dosage: NEBULIZE THE CONTENTS OF 1 VIAL(S) 2.5MG EVERY DAY, AMPULE
     Route: 055
  9. PULMOZYME [Suspect]
     Active Substance: DORNASE ALFA
     Indication: CHRONIC RESPIRATORY FAILURE
  10. PULMOZYME [Suspect]
     Active Substance: DORNASE ALFA
     Indication: HYPOXIA
  11. CEFEPIME HCL [Suspect]
     Active Substance: CEFEPIME HYDROCHLORIDE
     Indication: PSEUDOMONAS INFECTION
     Route: 065
  12. TRIAMTERENE HCTZ [Concomitant]
     Active Substance: HYDROCHLOROTHIAZIDE\TRIAMTERENE
     Dosage: ONGOING: YES; 37.5?25 MG DAILY
     Route: 048
  13. SPIRIVA RESPIMAT [Concomitant]
     Active Substance: TIOTROPIUM BROMIDE
     Indication: CHRONIC OBSTRUCTIVE PULMONARY DISEASE
     Dosage: ONGOING : YES
  14. METHYLPREDNISOLONE. [Concomitant]
     Active Substance: METHYLPREDNISOLONE
     Indication: CHRONIC OBSTRUCTIVE PULMONARY DISEASE
     Dosage: ONGOING : YES
  15. PULMOZYME [Suspect]
     Active Substance: DORNASE ALFA
     Indication: CHRONIC OBSTRUCTIVE PULMONARY DISEASE
     Dosage: NEBULIZER
     Route: 055
     Dates: start: 2016

REACTIONS (12)
  - Productive cough [Not Recovered/Not Resolved]
  - Cough [Not Recovered/Not Resolved]
  - Pneumonia [Unknown]
  - Pneumonia pseudomonal [Unknown]
  - Increased viscosity of upper respiratory secretion [Not Recovered/Not Resolved]
  - Sputum abnormal [Not Recovered/Not Resolved]
  - Dyspnoea [Unknown]
  - Dysstasia [Unknown]
  - Off label use [Unknown]
  - Intentional product use issue [Unknown]
  - Middle insomnia [Recovered/Resolved]
  - Fear [Recovered/Resolved]

NARRATIVE: CASE EVENT DATE: 2016
